FAERS Safety Report 6511260-5 (Version None)
Quarter: 2009Q4

REPORT INFORMATION
  Report Type: 
  Country: None (occurrence: None)
  Receive Date: 20091222
  Receipt Date: 20090318
  Transmission Date: 20100525
  Serious: No
  Sender: FDA-Public Use
  Company Number: US-ASTRAZENECA-2009UW07076

PATIENT
  Age: 70 Year
  Sex: Female
  Weight: 69.9 kg

DRUGS (6)
  1. CRESTOR [Suspect]
     Indication: BLOOD CHOLESTEROL INCREASED
     Route: 048
     Dates: start: 20090317
  2. ZIAC [Concomitant]
  3. TARCA [Concomitant]
  4. NEXIUM [Concomitant]
     Indication: GASTROOESOPHAGEAL REFLUX DISEASE
     Route: 048
  5. CALCIUM [Concomitant]
  6. ASPIRIN [Concomitant]

REACTIONS (1)
  - PALPITATIONS [None]
